FAERS Safety Report 25031751 (Version 1)
Quarter: 2025Q1

REPORT INFORMATION
  Report Type: Spontaneous
  Country: US (occurrence: None)
  Receive Date: 20250301
  Receipt Date: 20250301
  Transmission Date: 20250409
  Serious: Yes (Life-Threatening, Hospitalization, Other)
  Sender: FDA-CTU
  Company Number: None

PATIENT
  Age: 44 Year
  Sex: Male
  Weight: 90 kg

DRUGS (7)
  1. OSELTAMIVIR PHOSPHATE [Suspect]
     Active Substance: OSELTAMIVIR PHOSPHATE
     Indication: Influenza
     Dosage: 10CAPSULES TWICE A DAY ORAL
     Route: 048
     Dates: start: 20250220, end: 20250223
  2. Brupropion XL [Concomitant]
  3. Hydrochlorothiozide [Concomitant]
  4. LISINOPRIL [Concomitant]
     Active Substance: LISINOPRIL
  5. Doxycycline Monohydr [Concomitant]
  6. HYDROXYZINE HYDROCHLORIDE [Concomitant]
     Active Substance: HYDROXYZINE HYDROCHLORIDE
  7. Diphenhydyamine HCI [Concomitant]

REACTIONS (3)
  - Pneumothorax [None]
  - Feeling abnormal [None]
  - Completed suicide [None]

NARRATIVE: CASE EVENT DATE: 20250223
